FAERS Safety Report 8431384-5 (Version None)
Quarter: 2012Q2

REPORT INFORMATION
  Report Type: 
  Country: None (occurrence: None)
  Receive Date: 20120613
  Receipt Date: 20120606
  Transmission Date: 20120825
  Serious: Yes (Other)
  Sender: FDA-Public Use
  Company Number: US-PFIZER INC-2012136254

PATIENT
  Sex: Female

DRUGS (3)
  1. LOSARTAN POTASSIUM [Suspect]
     Indication: HYPERTENSION
     Dosage: 50 MG, 2 AT NIGHT
     Dates: start: 20120401
  2. ALLEGRA [Suspect]
     Indication: HYPERSENSITIVITY
     Dosage: 180 MG, 1X/DAY
     Route: 048
     Dates: start: 20120101
  3. AMLODIPINE BESYLATE [Suspect]
     Indication: HYPERTENSION
     Dosage: 10 MG, UNK
     Dates: end: 20120401

REACTIONS (1)
  - HYPERTENSION [None]
